FAERS Safety Report 7326126-0 (Version None)
Quarter: 2011Q1

REPORT INFORMATION
  Report Type: 
  Country: None (occurrence: None)
  Receive Date: 20110302
  Receipt Date: 20110221
  Transmission Date: 20110831
  Serious: Yes (Life-Threatening, Hospitalization)
  Sender: FDA-Public Use
  Company Number: IT-ROCHE-761690

PATIENT
  Sex: Female

DRUGS (1)
  1. XELODA [Suspect]
     Dosage: FREQUENCY: DAILY
     Route: 048
     Dates: start: 20110122, end: 20110203

REACTIONS (6)
  - SEPTIC SHOCK [None]
  - DIARRHOEA [None]
  - PANCYTOPENIA [None]
  - GASTROINTESTINAL TOXICITY [None]
  - ILEUS PARALYTIC [None]
  - STOMATITIS [None]
